FAERS Safety Report 5528284-7 (Version None)
Quarter: 2008Q1

REPORT INFORMATION
  Report Type: 
  Country: None (occurrence: None)
  Receive Date: 20071128
  Receipt Date: 20071116
  Transmission Date: 20080703
  Serious: Yes (Hospitalization)
  Sender: FDA-Public Use
  Company Number: FR-GENENTECH-251770

PATIENT
  Sex: Male

DRUGS (8)
  1. MABTHERA [Suspect]
     Indication: LYMPHOMA
     Dosage: 375 MG/M2, UNK
     Route: 042
     Dates: start: 20040101
  2. ADRIAMYCIN PFS [Suspect]
     Indication: LYMPHOMA
     Route: 042
     Dates: start: 20021001, end: 20030101
  3. ADRIAMYCIN PFS [Suspect]
     Dosage: 490 MG/M2, UNK
     Dates: start: 20031101, end: 20040601
  4. ALKERAN [Suspect]
     Indication: LYMPHOMA
     Dosage: 140 MG, UNK
     Route: 042
  5. ETOPOSIDE [Suspect]
     Indication: LYMPHOMA
     Dosage: 800 MG/M2, UNK
     Route: 042
  6. BICNU [Suspect]
     Indication: LYMPHOMA
     Dosage: 300 MG/M2, UNK
     Route: 042
     Dates: start: 20030301
  7. ARACYTINE [Suspect]
     Indication: LYMPHOMA
     Dosage: 37 MG/M2, UNK
     Route: 042
  8. CYCLOPHOSPHAMIDE [Suspect]
     Indication: LYMPHOMA
     Dosage: 5400 MG/M2, UNK
     Route: 042
     Dates: start: 20021001, end: 20030101

REACTIONS (1)
  - ACUTE MYELOID LEUKAEMIA [None]
